FAERS Safety Report 8776732 (Version 1)
Quarter: 2012Q4

REPORT INFORMATION
  Report Type: 
  Country: BR (occurrence: BR)
  Receive Date: 20120910
  Receipt Date: 20120910
  Transmission Date: 20130627
  Serious: Yes (Other)
  Sender: FDA-Public Use
  Company Number: BR-JNJFOC-20120900049

PATIENT
  Age: 71 Year
  Sex: Male
  Weight: 65 kg

DRUGS (2)
  1. IMOSEC [Suspect]
     Route: 048
  2. IMOSEC [Suspect]
     Indication: CONSTIPATION
     Route: 048
     Dates: start: 2010, end: 201206

REACTIONS (2)
  - Blood potassium increased [Recovering/Resolving]
  - Off label use [Unknown]
